FAERS Safety Report 9771790 (Version 1)
Quarter: 2013Q3

REPORT INFORMATION
  Report Type: Spontaneous
  Country: GB (occurrence: None)
  Receive Date: 20130918
  Receipt Date: 20130918
  Transmission Date: 20140515
  Serious: Yes (Other)
  Sender: FDA-Public Use
  Company Number: DE-ALKEM-000134

PATIENT
  Age: 37 Year
  Sex: Female

DRUGS (2)
  1. CEFUROXIME [Suspect]
     Indication: ANTIBIOTIC PROPHYLAXIS
     Route: 042
  2. PIRITRAMIDE [Suspect]
     Indication: PROCEDURAL PAIN
     Route: 042

REACTIONS (2)
  - Drug physiologic incompatibility [None]
  - Product deposit [None]
